FAERS Safety Report 7024561-1 (Version None)
Quarter: 2010Q4

REPORT INFORMATION
  Report Type: 
  Country: None (occurrence: None)
  Receive Date: 20101001
  Receipt Date: 20100928
  Transmission Date: 20110411
  Serious: Yes (Hospitalization, Other)
  Sender: FDA-Public Use
  Company Number: JP-PFIZER INC-2010111160

PATIENT
  Age: 83 Year
  Sex: Female

DRUGS (16)
  1. AMLODIPINE BESYLATE [Suspect]
     Dosage: 5 MG DAILY
     Route: 048
  2. OLMETEC [Concomitant]
     Dosage: UNK
  3. LASIX [Concomitant]
     Dosage: UNK
  4. LIPITOR [Concomitant]
     Dosage: UNK
  5. EBRANTIL [Concomitant]
     Dosage: UNK
  6. MAALOX [Concomitant]
     Dosage: UNK
  7. ALLOPURINOL [Concomitant]
     Dosage: UNK
  8. TAKEPRON [Concomitant]
     Dosage: UNK
  9. GASMOTIN [Concomitant]
     Dosage: UNK
  10. MERISLON [Concomitant]
     Dosage: UNK
  11. CEPHADOL [Concomitant]
     Dosage: UNK
  12. DOGMATYL [Concomitant]
     Dosage: UNK
  13. URSO 250 [Concomitant]
     Dosage: UNK
  14. METHYCOBAL [Concomitant]
  15. RIZE [Concomitant]
     Dosage: UNK
  16. PURSENNID [Concomitant]

REACTIONS (2)
  - BLOOD SODIUM DECREASED [None]
  - GENERALISED OEDEMA [None]
